FAERS Safety Report 10551157 (Version 1)
Quarter: 2014Q4

REPORT INFORMATION
  Report Type: Spontaneous
  Country: TR (occurrence: TR)
  Receive Date: 20141029
  Receipt Date: 20141029
  Transmission Date: 20150529
  Serious: Yes (Other)
  Sender: FDA-Public Use
  Company Number: TR-ROCHE-1471314

PATIENT
  Age: 84 Year
  Sex: Female

DRUGS (1)
  1. LUCENTIS [Suspect]
     Active Substance: RANIBIZUMAB
     Indication: AGE-RELATED MACULAR DEGENERATION
     Route: 050
     Dates: start: 20140309

REACTIONS (3)
  - Non-infectious endophthalmitis [Unknown]
  - Ocular hyperaemia [Unknown]
  - Blindness [Unknown]

NARRATIVE: CASE EVENT DATE: 20140410
